FAERS Safety Report 16749645 (Version 1)
Quarter: 2019Q3

REPORT INFORMATION
  Report Type: Spontaneous
  Country: PT (occurrence: PT)
  Receive Date: 20190828
  Receipt Date: 20190828
  Transmission Date: 20191005
  Serious: Yes (Hospitalization, Disabling, Other)
  Sender: FDA-Public Use
  Company Number: PT-MYLANLABS-2019M1078907

PATIENT
  Sex: Male

DRUGS (10)
  1. L DOPA [Suspect]
     Active Substance: LEVODOPA
     Dosage: AT ^ON STATE^ (STATE 2)
     Route: 065
  2. APOMORPHINE [Suspect]
     Active Substance: APOMORPHINE
     Indication: PARKINSON^S DISEASE
     Dosage: AT ^ON STATE^ (STATE 2)
     Route: 058
  3. L DOPA [Suspect]
     Active Substance: LEVODOPA
     Indication: PARKINSON^S DISEASE
     Dosage: INITIAL DOSE NOT STATED. LATER, DOSE WAS MINIMALLY INCREASED
     Route: 065
  4. L DOPA [Suspect]
     Active Substance: LEVODOPA
     Dosage: AT ^SUPRA-ON STATE^ (STATE 3)
     Route: 065
  5. APOMORPHINE [Suspect]
     Active Substance: APOMORPHINE
     Dosage: AT ^SUPRA-ON STATE^ (STATE 3)
     Route: 058
  6. ROPINIROLE. [Concomitant]
     Active Substance: ROPINIROLE
     Dosage: UNK
     Route: 065
  7. CARBIDOPA/LEVODOPA [Suspect]
     Active Substance: CARBIDOPA\LEVODOPA
     Dosage: TWO TABLETS FIVE TIMES A DAY
     Route: 065
  8. L DOPA [Suspect]
     Active Substance: LEVODOPA
     Dosage: 150 MILLIGRAM
     Route: 065
  9. AMANTADINE. [Concomitant]
     Active Substance: AMANTADINE HYDROCHLORIDE
     Dosage: 100 MILLIGRAM
     Route: 065
  10. CARBIDOPA/LEVODOPA [Suspect]
     Active Substance: CARBIDOPA\LEVODOPA
     Indication: PARKINSON^S DISEASE
     Dosage: ONE TABLET THREE TIMES A DAY
     Route: 065

REACTIONS (7)
  - Gait disturbance [Recovering/Resolving]
  - Fall [Recovering/Resolving]
  - Balance disorder [Recovered/Resolved]
  - Paradoxical drug reaction [Recovering/Resolving]
  - Dyskinesia [Recovered/Resolved]
  - Femur fracture [Recovering/Resolving]
  - Humerus fracture [Recovering/Resolving]
